FAERS Safety Report 9094913 (Version 1)
Quarter: 2013Q1

REPORT INFORMATION
  Report Type: Spontaneous
  Country: US (occurrence: None)
  Receive Date: 20130214
  Receipt Date: 20130214
  Transmission Date: 20140127
  Serious: Yes (Hospitalization)
  Sender: FDA-Public Use
  Company Number: None

PATIENT
  Age: 72 Year
  Sex: Male
  Weight: 92.7 kg

DRUGS (1)
  1. PRALIDOXIME CHLORIDE [Suspect]
     Route: 042
     Dates: start: 20120914, end: 20120914

REACTIONS (3)
  - Hypertension [None]
  - Tachycardia [None]
  - Respiratory distress [None]
